FAERS Safety Report 10626014 (Version 4)
Quarter: 2014Q4

REPORT INFORMATION
  Report Type: Spontaneous
  Country: JP (occurrence: JP)
  Receive Date: 20141204
  Receipt Date: 20141230
  Transmission Date: 20150529
  Serious: Yes (Other)
  Sender: FDA-Public Use
  Company Number: JP-PFIZER INC-2014328884

PATIENT
  Age: 83 Year
  Sex: Male
  Weight: 35 kg

DRUGS (2)
  1. ANAEMETRO [Suspect]
     Active Substance: METRONIDAZOLE
     Indication: CLOSTRIDIUM DIFFICILE INFECTION
     Dosage: 500 MG, 3X/DAY
     Route: 041
     Dates: start: 20141128, end: 2014
  2. ANAEMETRO [Suspect]
     Active Substance: METRONIDAZOLE
     Dosage: 125 MG, UNK
     Route: 041
     Dates: start: 2014

REACTIONS (1)
  - Renal impairment [Recovering/Resolving]

NARRATIVE: CASE EVENT DATE: 2014
